FAERS Safety Report 9388864 (Version 1)
Quarter: 2013Q3

REPORT INFORMATION
  Report Type: Spontaneous
  Country: US (occurrence: US)
  Receive Date: 20130708
  Receipt Date: 20130708
  Transmission Date: 20140515
  Serious: No
  Sender: FDA-Public Use
  Company Number: US-009507513-1307USA003350

PATIENT
  Sex: Male

DRUGS (2)
  1. MIRALAX [Suspect]
     Indication: CROHN^S DISEASE
     Dosage: UNK, UNKNOWN
     Route: 048
  2. MIRALAX [Suspect]
     Indication: DIVERTICULITIS
     Dosage: UNK, UNKNOWN
     Route: 048

REACTIONS (3)
  - Off label use [Unknown]
  - Product solubility abnormal [Unknown]
  - Product gel formation [Unknown]
